FAERS Safety Report 5415378-X (Version None)
Quarter: 2007Q3

REPORT INFORMATION
  Report Type: 
  Country: None (occurrence: None)
  Receive Date: 20070814
  Receipt Date: 20070814
  Transmission Date: 20080115
  Serious: Yes (Other)
  Sender: FDA-Public Use
  Company Number: None

PATIENT
  Age: 62 Year
  Sex: Male

DRUGS (3)
  1. ALFUZOSIN;UROXATRAL;SANOFI AVENTIS US;BENIGN PROSTATIC [Suspect]
     Indication: BENIGN PROSTATIC HYPERPLASIA
     Dosage: 10MG QD PO
     Route: 048
     Dates: start: 20070327, end: 20070403
  2. RANITIDINE [Concomitant]
  3. DILTIAZEM [Concomitant]

REACTIONS (1)
  - DRY MOUTH [None]
